FAERS Safety Report 5107509-6 (Version None)
Quarter: 2006Q3

REPORT INFORMATION
  Report Type: 
  Country: None (occurrence: None)
  Receive Date: 20060913
  Receipt Date: 20060913
  Transmission Date: 20061208
  Serious: No
  Sender: FDA-Public Use
  Company Number: None

PATIENT
  Sex: Female

DRUGS (1)
  1. NITRGLYCERIN TRANSDERMAL SYSTEM [Suspect]
     Indication: CORONARY ARTERY DISEASE
     Dosage: 0.4 MG APPLY QD TRANSDERMAL
     Route: 062
     Dates: start: 20030101

REACTIONS (2)
  - RASH [None]
  - SWELLING [None]
